FAERS Safety Report 25710913 (Version 4)
Quarter: 2025Q4

REPORT INFORMATION
  Report Type: Spontaneous
  Country: US (occurrence: US)
  Receive Date: 20250821
  Receipt Date: 20251212
  Transmission Date: 20260117
  Serious: Yes (Hospitalization)
  Sender: SANOFI AVENTIS
  Company Number: US-SA-2025SA247663

PATIENT
  Age: 70 Year
  Sex: Female

DRUGS (20)
  1. DUPIXENT [Suspect]
     Active Substance: DUPILUMAB
     Indication: Dermatitis atopic
     Dosage: 300 MG, QOW
     Dates: start: 202506
  2. FLUOCINONIDE [Concomitant]
     Active Substance: FLUOCINONIDE
  3. EFUDEX [Concomitant]
     Active Substance: FLUOROURACIL
  4. HYDROCORTISONE [Concomitant]
     Active Substance: HYDROCORTISONE
  5. FOSINOPRIL SODIUM [Concomitant]
     Active Substance: FOSINOPRIL SODIUM
  6. BUPROPION HYDROCHLORIDE [Concomitant]
     Active Substance: BUPROPION HYDROCHLORIDE
  7. ACTIVELLA [Concomitant]
     Active Substance: ESTRADIOL\NORETHINDRONE ACETATE
  8. DILTIAZEM HYDROCHLORIDE [Concomitant]
     Active Substance: DILTIAZEM HYDROCHLORIDE
  9. DESONIDE [Concomitant]
     Active Substance: DESONIDE
  10. CLOBETASOL PROPIONATE [Concomitant]
     Active Substance: CLOBETASOL PROPIONATE
  11. ECONAZOLE NITRATE [Concomitant]
     Active Substance: ECONAZOLE NITRATE
  12. KLONOPIN [Concomitant]
     Active Substance: CLONAZEPAM
  13. LIPITOR [Concomitant]
     Active Substance: ATORVASTATIN CALCIUM
  14. METROGEL [Concomitant]
     Active Substance: METRONIDAZOLE
  15. CLARITHROMYCIN [Concomitant]
     Active Substance: CLARITHROMYCIN
  16. TACROLIMUS [Concomitant]
     Active Substance: TACROLIMUS
  17. TRIAMCINOLONE [Concomitant]
     Active Substance: TRIAMCINOLONE
  18. ZOLOFT [Concomitant]
     Active Substance: SERTRALINE HYDROCHLORIDE
  19. VALTREX [Concomitant]
     Active Substance: VALACYCLOVIR HYDROCHLORIDE
  20. ESTROGENS [Concomitant]
     Active Substance: ESTROGENS

REACTIONS (6)
  - Surgery [Unknown]
  - Mouth ulceration [Unknown]
  - Contusion [Unknown]
  - Eyelid irritation [Unknown]
  - Stomatitis [Unknown]
  - Rash [Unknown]

NARRATIVE: CASE EVENT DATE: 20250101
